FAERS Safety Report 17875715 (Version 2)
Quarter: 2020Q2

REPORT INFORMATION
  Report Type: Spontaneous
  Country: US (occurrence: US)
  Receive Date: 20200609
  Receipt Date: 20200615
  Transmission Date: 20200714
  Serious: Yes (Disabling, Other)
  Sender: FDA-Public Use
  Company Number: US-SA-2020SA141808

PATIENT

DRUGS (1)
  1. ZANTAC [Suspect]
     Active Substance: RANITIDINE HYDROCHLORIDE
     Dosage: UNK, FREQUENCY: SEVERAL TIMES PER WEEK
     Dates: start: 201206, end: 202001

REACTIONS (4)
  - Impaired work ability [Unknown]
  - Injury [Unknown]
  - Anxiety [Unknown]
  - Colon cancer [Unknown]

NARRATIVE: CASE EVENT DATE: 20180528
